FAERS Safety Report 7788858-X (Version None)
Quarter: 2011Q3

REPORT INFORMATION
  Report Type: 
  Country: None (occurrence: None)
  Receive Date: 20110928
  Receipt Date: 20110916
  Transmission Date: 20111222
  Serious: Yes (Disabling)
  Sender: FDA-Public Use
  Company Number: 2011MA014120

PATIENT
  Age: 30 Year
  Sex: Female

DRUGS (2)
  1. ACETAMINOPHEN [Concomitant]
  2. GABAPENTIN [Suspect]
     Indication: NEURALGIA
     Dosage: 900 MG;HS;PO
     Route: 048

REACTIONS (5)
  - MAJOR DEPRESSION [None]
  - CRYING [None]
  - LETHARGY [None]
  - DEPRESSED MOOD [None]
  - APATHY [None]
